FAERS Safety Report 5897655-1 (Version None)
Quarter: 2008Q3

REPORT INFORMATION
  Report Type: 
  Country: None (occurrence: None)
  Receive Date: 20080919
  Receipt Date: 20080826
  Transmission Date: 20090109
  Serious: No
  Sender: FDA-Public Use
  Company Number: US-WYE-H05723408

PATIENT
  Age: 27 Year
  Sex: Female
  Weight: 102.15 kg

DRUGS (1)
  1. PRISTIQ [Suspect]
     Dosage: 50 MG 1X PER 1 DAY
     Dates: start: 20080801

REACTIONS (2)
  - AGITATION [None]
  - ANXIETY [None]
